FAERS Safety Report 8338435-7 (Version None)
Quarter: 2012Q1

REPORT INFORMATION
  Report Type: 
  Country: None (occurrence: None)
  Receive Date: 20120329
  Receipt Date: 20090526
  Transmission Date: 20120608
  Serious: Yes (Hospitalization)
  Sender: FDA-Public Use
  Company Number: PHEH2009US05266

PATIENT
  Sex: Female

DRUGS (7)
  1. TRANDOLAPRIL [Concomitant]
  2. NASONEX [Concomitant]
  3. MIACALCIN [Concomitant]
  4. ALPRAZOLAM [Concomitant]
  5. SINGULAIR [Concomitant]
  6. LUNESTA [Concomitant]
  7. EXELON [Suspect]
     Dosage: 9.5 MG, TRANSDERMAL : 4.6 MG, TRANSDERMAL
     Route: 062

REACTIONS (4)
  - APPLICATION SITE ERYTHEMA [None]
  - VOMITING [None]
  - APPLICATION SITE PRURITUS [None]
  - NAUSEA [None]
